FAERS Safety Report 11832590 (Version 2)
Quarter: 2015Q4

REPORT INFORMATION
  Report Type: Spontaneous
  Country: SK (occurrence: SK)
  Receive Date: 20151214
  Receipt Date: 20151218
  Transmission Date: 20160305
  Serious: Yes (Death)
  Sender: FDA-Public Use
  Company Number: SK-PFIZER INC-2014104656

PATIENT
  Age: 61 Year
  Sex: Female

DRUGS (3)
  1. XALKORI [Suspect]
     Active Substance: CRIZOTINIB
     Dosage: 250 MG, ALTERNATE DAY
     Dates: start: 2013, end: 201406
  2. XALKORI [Suspect]
     Active Substance: CRIZOTINIB
     Dosage: UNK
     Dates: end: 20140805
  3. XALKORI [Suspect]
     Active Substance: CRIZOTINIB
     Indication: LUNG CANCER METASTATIC
     Dosage: 250 MG, 2X/DAY
     Dates: start: 20130222, end: 201303

REACTIONS (8)
  - Lung cancer metastatic [Fatal]
  - Vomiting [Unknown]
  - Disease progression [Fatal]
  - Hepatic enzyme increased [Unknown]
  - Bradycardia [Unknown]
  - Sinus tachycardia [Recovering/Resolving]
  - Photopsia [Unknown]
  - Gastrointestinal disorder [Unknown]

NARRATIVE: CASE EVENT DATE: 201406
